FAERS Safety Report 22536617 (Version 1)
Quarter: 2023Q2

REPORT INFORMATION
  Report Type: Report from Study
  Country: US (occurrence: US)
  Receive Date: 20230608
  Receipt Date: 20230608
  Transmission Date: 20230721
  Serious: Yes (Other)
  Sender: FDA-Public Use
  Company Number: US-SUN PHARMACEUTICAL INDUSTRIES LTD-2023R1-393402

PATIENT
  Age: 61 Year
  Sex: Male

DRUGS (3)
  1. DOXYCYCLINE [Suspect]
     Active Substance: DOXYCYCLINE
     Indication: Noninfective conjunctivitis
     Dosage: 100 MILLIGRAM, BID
     Route: 065
  2. OMEGA 3 [Suspect]
     Active Substance: CAPSAICIN
     Indication: Noninfective conjunctivitis
     Dosage: UNK
     Route: 047
  3. LOTEPREDNOL [Suspect]
     Active Substance: LOTEPREDNOL
     Indication: Noninfective conjunctivitis
     Dosage: UNK, BID
     Route: 065

REACTIONS (1)
  - Therapy non-responder [Unknown]
